FAERS Safety Report 5105459-2 (Version None)
Quarter: 2006Q3

REPORT INFORMATION
  Report Type: 
  Country: None (occurrence: None)
  Receive Date: 20060915
  Receipt Date: 20060711
  Transmission Date: 20061208
  Serious: No
  Sender: FDA-Public Use
  Company Number: US-GLAXOSMITHKLINE-A0611787A

PATIENT
  Age: 81 Year
  Sex: Male

DRUGS (11)
  1. AVANDARYL [Suspect]
     Dosage: 1TAB PER DAY
     Route: 048
     Dates: start: 20060601
  2. FOLIC ACID [Concomitant]
  3. LASIX [Concomitant]
  4. BENICAR [Concomitant]
  5. TOPROL-XL [Concomitant]
  6. HYTRIN [Concomitant]
  7. PRILOSEC [Concomitant]
  8. LYRICA [Concomitant]
  9. METANX [Concomitant]
  10. VYTORIN [Concomitant]
  11. PROCRIT [Concomitant]

REACTIONS (2)
  - BLOOD GLUCOSE DECREASED [None]
  - WEIGHT INCREASED [None]
